FAERS Safety Report 8477758-8 (Version None)
Quarter: 2012Q2

REPORT INFORMATION
  Report Type: 
  Country: None (occurrence: None)
  Receive Date: 20120629
  Receipt Date: 20110510
  Transmission Date: 20120825
  Serious: No
  Sender: FDA-Public Use
  Company Number: US-GLAXOSMITHKLINE-A0927770A

PATIENT
  Age: 55 Year
  Sex: Female

DRUGS (3)
  1. ALLEGRA [Suspect]
     Indication: MULTIPLE ALLERGIES
     Dosage: 180MG PER DAY
     Route: 048
  2. SINGULAIR [Suspect]
     Route: 065
  3. ALBUTEROL [Suspect]
     Route: 065

REACTIONS (2)
  - INSOMNIA [None]
  - DYSPNOEA [None]
